FAERS Safety Report 6667621-7 (Version None)
Quarter: 2010Q2

REPORT INFORMATION
  Report Type: 
  Country: None (occurrence: None)
  Receive Date: 20100405
  Receipt Date: 20100329
  Transmission Date: 20101027
  Serious: Yes (Other)
  Sender: FDA-Public Use
  Company Number: FR-AMGEN-QUU402403

PATIENT
  Sex: Male

DRUGS (4)
  1. NEULASTA [Suspect]
     Indication: CHEMOTHERAPY
     Route: 065
  2. ZOMETA [Concomitant]
  3. UNSPECIFIED ANTINEOPLASTIC AGENT [Concomitant]
  4. EPREX [Concomitant]

REACTIONS (2)
  - INCORRECT STORAGE OF DRUG [None]
  - THROMBOCYTOPENIA [None]
